FAERS Safety Report 5391132-2 (Version None)
Quarter: 2007Q3

REPORT INFORMATION
  Report Type: 
  Country: None (occurrence: None)
  Receive Date: 20070719
  Receipt Date: 20070711
  Transmission Date: 20080115
  Serious: Yes (Other)
  Sender: FDA-Public Use
  Company Number: PHHO2006US08556

PATIENT
  Age: 65 Year
  Sex: Female
  Weight: 63 kg

DRUGS (10)
  1. TEGASEROD [Suspect]
     Indication: DYSPEPSIA
     Dosage: 6 MG, BID
     Route: 048
     Dates: start: 20050511, end: 20060503
  2. CALCIUM W/VITAMIN D NOS [Concomitant]
  3. MULTI-VITAMIN [Concomitant]
  4. AVALIDE [Concomitant]
     Indication: HYPERTENSION
  5. NORVASC [Concomitant]
     Indication: HYPERTENSION
  6. LORAZEPAM [Concomitant]
     Indication: ANXIETY
  7. NEURONTIN [Concomitant]
     Indication: PAIN
  8. SODIUM CHLORIDE 0.9% [Concomitant]
     Indication: CHRONIC SINUSITIS
  9. ASPIRIN [Concomitant]
     Indication: PROPHYLAXIS
  10. TEQUIN [Concomitant]
     Indication: SINUSITIS

REACTIONS (2)
  - MENINGIOMA [None]
  - SURGERY [None]
